FAERS Safety Report 5679396-9 (Version None)
Quarter: 2008Q1

REPORT INFORMATION
  Report Type: 
  Country: None (occurrence: None)
  Receive Date: 20080325
  Receipt Date: 20080317
  Transmission Date: 20080703
  Serious: Yes (Hospitalization)
  Sender: FDA-Public Use
  Company Number: US-ELI_LILLY_AND_COMPANY-US200802005372

PATIENT
  Sex: Male
  Weight: 84.807 kg

DRUGS (13)
  1. BYETTA [Suspect]
     Dosage: 5 UG, 2/D
     Route: 058
     Dates: start: 20070201, end: 20070301
  2. BYETTA [Suspect]
     Dosage: 10 UG, 2/D
     Route: 058
     Dates: start: 20070301
  3. LANTUS [Concomitant]
     Dosage: 50 U, AS NEEDED
     Dates: start: 20020101
  4. GLUCOPHAGE [Concomitant]
     Dosage: 1000 MG, EACH MORNING
  5. GLUCOPHAGE [Concomitant]
     Dosage: 500 MG, EACH EVENING
  6. ACTOS [Concomitant]
     Dates: end: 20070201
  7. CRESTOR [Concomitant]
     Indication: BLOOD CHOLESTEROL
     Dosage: 10 MG, UNKNOWN
     Dates: start: 19980101
  8. PLETAL [Concomitant]
     Indication: ANTICOAGULANT THERAPY
     Dosage: 100 MG, 2/D
     Dates: start: 20010101
  9. ASPIRIN [Concomitant]
     Indication: ANTICOAGULANT THERAPY
     Dosage: 81 MG, DAILY (1/D)
     Dates: start: 19790101
  10. ATENOLOL [Concomitant]
     Indication: CARDIAC DISORDER
     Dosage: 50 MG, DAILY (1/D)
  11. FLOMAX [Concomitant]
     Indication: PROPHYLAXIS
     Dosage: 0.4 MG, DAILY (1/D)
  12. REGLAN [Concomitant]
     Indication: DYSPEPSIA
     Dates: start: 20000101
  13. PRILOSEC [Concomitant]
     Dosage: 20 MG, UNKNOWN
     Dates: start: 20000101

REACTIONS (8)
  - ABDOMINAL DISTENSION [None]
  - BLOOD PRESSURE INCREASED [None]
  - NAUSEA [None]
  - PLATELET COUNT DECREASED [None]
  - PROCTALGIA [None]
  - STAPHYLOCOCCAL ABSCESS [None]
  - URINARY RETENTION [None]
  - WEIGHT DECREASED [None]
